FAERS Safety Report 8086956-7 (Version None)
Quarter: 2012Q1

REPORT INFORMATION
  Report Type: 
  Country: None (occurrence: None)
  Receive Date: 20120128
  Receipt Date: 20110519
  Transmission Date: 20120608
  Serious: No
  Sender: FDA-Public Use
  Company Number: US-ABBOTT-11P-163-0727345-00

PATIENT
  Age: 20 Year
  Sex: Male

DRUGS (5)
  1. HUMIRA [Suspect]
  2. HUMIRA [Suspect]
     Indication: PSORIATIC ARTHROPATHY
     Dates: start: 20100401
  3. HYDROCODONE BITARTRATE [Concomitant]
     Indication: PAIN
     Dosage: 5/500 MG AS NEEDED
     Route: 048
  4. PREDNISONE TAB [Concomitant]
     Indication: PRODUCT USED FOR UNKNOWN INDICATION
     Route: 048
  5. TRIAMCINOLONE [Concomitant]
     Indication: PSORIASIS
     Route: 061

REACTIONS (5)
  - PAIN [None]
  - PSORIATIC ARTHROPATHY [None]
  - DRUG DOSE OMISSION [None]
  - BACK PAIN [None]
  - MOBILITY DECREASED [None]
